FAERS Safety Report 8983550 (Version 2)
Quarter: 2013Q1

REPORT INFORMATION
  Report Type: Spontaneous
  Country: ES (occurrence: ES)
  Receive Date: 20121224
  Receipt Date: 20130108
  Transmission Date: 20140127
  Serious: Yes (Death, Hospitalization, Other)
  Sender: FDA-Public Use
  Company Number: ES-COVIDIEN/TYCO HEALTHCARE/MALLINCKRODT-T201204398

PATIENT
  Age: 66 Year
  Sex: Male

DRUGS (7)
  1. FENTANYL TRANSDERMAL SYSTEM [Suspect]
     Indication: ABDOMINAL PAIN
     Dosage: 12 MCG / 3 DAYS
     Route: 062
     Dates: end: 2010
  2. IMATINIB [Suspect]
     Indication: GASTROINTESTINAL STROMAL TUMOUR
     Dosage: 400 MG, QD
  3. IMATINIB [Suspect]
     Dosage: 800 MG, QD
  4. SALINE [Suspect]
     Dosage: UNK
     Route: 048
  5. TAMSULOSIN [Concomitant]
     Dosage: 0.4 MG, QD
  6. OMEPRAZOLE [Concomitant]
     Dosage: 20 MG, QD
  7. MAGNESIUM CHELATE [Concomitant]
     Dosage: UNK

REACTIONS (6)
  - Hepatic encephalopathy [Fatal]
  - Urinary tract infection [Recovering/Resolving]
  - Dehydration [Unknown]
  - Constipation [Recovering/Resolving]
  - Hypernatraemia [Unknown]
  - Vomiting [Recovering/Resolving]
